FAERS Safety Report 11252906 (Version 1)
Quarter: 2015Q3

REPORT INFORMATION
  Report Type: Spontaneous
  Country: US (occurrence: None)
  Receive Date: 20150707
  Receipt Date: 20150707
  Transmission Date: 20151125
  Serious: Yes (Hospitalization)
  Sender: FDA-Public Use
  Company Number: 2015SMT00140

PATIENT
  Age: 58 Year
  Sex: Male

DRUGS (2)
  1. REGRANEX [Suspect]
     Active Substance: BECAPLERMIN
     Indication: BLISTER INFECTED
     Dates: start: 201505, end: 20150608
  2. UNSPECIFIED ANTIBIOTICS [Concomitant]
     Active Substance: UNSPECIFIED INGREDIENT

REACTIONS (2)
  - Osteomyelitis [None]
  - Infection [None]

NARRATIVE: CASE EVENT DATE: 201506
